FAERS Safety Report 4643432-9 (Version None)
Quarter: 2005Q2

REPORT INFORMATION
  Report Type: 
  Country: None (occurrence: None)
  Receive Date: 20050420
  Receipt Date: 20050420
  Transmission Date: 20051028
  Serious: No
  Sender: FDA-Public Use
  Company Number: None

PATIENT
  Sex: Male
  Weight: 71.8 kg

DRUGS (6)
  1. CETUXIMAB [Suspect]
     Dosage: WEEKS 1-7, CONCURRENT
     Dates: start: 20050208
  2. CISPLATIN [Suspect]
     Dosage: Q WEEK FOR WEEKS 2-7, CONCURRENT RT 60 GY/DAY WEEKS 2-7
     Dates: start: 20050208
  3. PHENERGAN [Concomitant]
  4. VANCOMYCIN [Concomitant]
  5. COMPAZINE [Concomitant]
  6. ATIVAN [Concomitant]

REACTIONS (6)
  - DIARRHOEA [None]
  - INCISION SITE COMPLICATION [None]
  - PNEUMONIA STAPHYLOCOCCAL [None]
  - POST PROCEDURAL NAUSEA [None]
  - POST PROCEDURAL VOMITING [None]
  - REMOVAL OF FOREIGN BODY [None]
